FAERS Safety Report 12635573 (Version 1)
Quarter: 2016Q3

REPORT INFORMATION
  Report Type: Spontaneous
  Country: US (occurrence: US)
  Receive Date: 20160809
  Receipt Date: 20160809
  Transmission Date: 20161109
  Serious: No
  Sender: FDA-Public Use
  Company Number: US-TARO-2015TAR00652

PATIENT
  Age: 50 Year
  Sex: Female
  Weight: 56.69 kg

DRUGS (1)
  1. TERBINAFINE CREAM 1% [Suspect]
     Active Substance: TERBINAFINE
     Indication: FUNGAL INFECTION
     Dosage: 3-4X/DAY
     Route: 061
     Dates: start: 20150630, end: 20150707

REACTIONS (5)
  - Malaise [Recovered/Resolved]
  - Eye pruritus [Recovered/Resolved]
  - Paraesthesia [Recovered/Resolved]
  - Hypoaesthesia [Recovered/Resolved]
  - Inappropriate schedule of drug administration [Recovered/Resolved]

NARRATIVE: CASE EVENT DATE: 20150630
